FAERS Safety Report 7056859-5 (Version None)
Quarter: 2010Q4

REPORT INFORMATION
  Report Type: 
  Country: None (occurrence: None)
  Receive Date: 20101022
  Receipt Date: 20100921
  Transmission Date: 20110411
  Serious: No
  Sender: FDA-Public Use
  Company Number: US-BAYER-201034453NA

PATIENT
  Sex: Male

DRUGS (1)
  1. AVELOX [Suspect]
     Indication: CHRONIC SINUSITIS
     Dosage: TOTAL DAILY DOSE: 400 MG  UNIT DOSE: 400 MG
     Route: 048

REACTIONS (2)
  - BACK PAIN [None]
  - HYPOAESTHESIA [None]
